FAERS Safety Report 15673050 (Version 1)
Quarter: 2018Q4

REPORT INFORMATION
  Report Type: Spontaneous
  Country: GB (occurrence: GB)
  Receive Date: 20181129
  Receipt Date: 20181129
  Transmission Date: 20190205
  Serious: Yes (Hospitalization)
  Sender: FDA-Public Use
  Company Number: GB-TEVA-2018-GB-979814

PATIENT
  Age: 77 Year

DRUGS (14)
  1. DOXAZOSIN [Concomitant]
     Active Substance: DOXAZOSIN\DOXAZOSIN MESYLATE
     Dosage: 4 MILLIGRAM DAILY;
  2. NITROFURANTOIN. [Concomitant]
     Active Substance: NITROFURANTOIN
     Dosage: 200 MILLIGRAM DAILY;
  3. CIPROFLOXACIN. [Concomitant]
     Active Substance: CIPROFLOXACIN
     Route: 065
  4. BENDROFLUMETHIAZIDE [Concomitant]
     Active Substance: BENDROFLUMETHIAZIDE
     Dosage: 2.5 MILLIGRAM DAILY; EVERY MORNINH
  5. FOLIC ACID. [Concomitant]
     Active Substance: FOLIC ACID
  6. GENTAMICIN. [Concomitant]
     Active Substance: GENTAMICIN
     Route: 065
  7. CELECOXIB. [Concomitant]
     Active Substance: CELECOXIB
     Dosage: 200 MILLIGRAM DAILY;
  8. COLECALCIFEROL [Concomitant]
     Active Substance: CHOLECALCIFEROL
     Dosage: 800 IU (INTERNATIONAL UNIT) DAILY;
     Route: 065
  9. COCODAMOL [Concomitant]
     Active Substance: ACETAMINOPHEN\CODEINE PHOSPHATE
  10. CALCIUM CARBONATE. [Concomitant]
     Active Substance: CALCIUM CARBONATE
     Dosage: 2.5 MILLIGRAM DAILY;
  11. ABATACEPT [Suspect]
     Active Substance: ABATACEPT
     Dosage: 125MG/1ML SOLUTION FOR INJECTION PRE-FILLED DISPOSABLE DEVICES
  12. HYLO-FORTE [Concomitant]
     Active Substance: HYALURONATE SODIUM
  13. METHOTREXATE. [Suspect]
     Active Substance: METHOTREXATE
  14. OMEPRAZOLE. [Concomitant]
     Active Substance: OMEPRAZOLE
     Dosage: 20 MILLIGRAM DAILY;

REACTIONS (4)
  - Urinary tract infection [Recovered/Resolved]
  - Pyelonephritis [Unknown]
  - Kidney infection [Unknown]
  - Groin pain [Unknown]

NARRATIVE: CASE EVENT DATE: 20180419
